FAERS Safety Report 8553008-9 (Version None)
Quarter: 2012Q3

REPORT INFORMATION
  Report Type: 
  Country: None (occurrence: None)
  Receive Date: 20120720
  Receipt Date: 20110707
  Transmission Date: 20120928
  Serious: Yes (Death, Hospitalization)
  Sender: FDA-Public Use
  Company Number: KV201100108

PATIENT
  Age: 64 Year
  Sex: Female
  Weight: 59 kg

DRUGS (32)
  1. CATAPRES [Concomitant]
  2. ASPIRIN [Concomitant]
  3. GLUCERNA (AMINO ACIDS NOS, CARTHAMUS TINCTORIUS OIL, FRUCTOSE, GLYCINE [Concomitant]
  4. ACETAMINOPHEN [Concomitant]
  5. HEPARIN [Concomitant]
  6. JEVITY (ELECTROLYTES NOS, FATTY ACIDS NOS, GLYCINE MAX SEED OIL, MINER [Concomitant]
  7. DURAGESIC-100 [Concomitant]
  8. NORVASC [Concomitant]
  9. GYANOCOBALAMIN [Concomitant]
  10. DECADRON [Concomitant]
  11. VALIUM [Concomitant]
  12. OXYCODONE WITH APAP (OXYCODONE HYDROCHLORIDE, PARACETAMOL) [Concomitant]
  13. MORPHINE SUL HYT [Concomitant]
  14. DEXTROSE [Concomitant]
  15. NAPROSYN [Concomitant]
  16. MORPHINE SULFATE [Suspect]
     Indication: CANCER PAIN
     Dosage: 1-2  TABLETS, BID, ORAL
     Route: 048
     Dates: start: 20080710, end: 20080901
  17. FEMARA [Concomitant]
  18. SERTRALINE HYDROCHLORIDE [Concomitant]
  19. SEROQUEL [Concomitant]
  20. PHENYTOIN [Concomitant]
  21. PROCHLORPERAZINE [Concomitant]
  22. ACTOS [Concomitant]
  23. MILK OF MAGNESIA TAB [Concomitant]
  24. LEVAQUIN [Concomitant]
  25. BISACODYL [Concomitant]
  26. INSULIN [Concomitant]
  27. FOLIC ACID [Concomitant]
  28. NEXIUM [Concomitant]
  29. ALPRAZOLAM [Concomitant]
  30. PROTONIX [Concomitant]
  31. HYDROMORPHONE HYDROCHLORIDE [Concomitant]
  32. ACTONEL [Concomitant]

REACTIONS (25)
  - SEPSIS [None]
  - HYPOPHAGIA [None]
  - ACUTE RESPIRATORY FAILURE [None]
  - DIARRHOEA [None]
  - ENCEPHALOPATHY [None]
  - NAUSEA [None]
  - FATIGUE [None]
  - BREAST CANCER METASTATIC [None]
  - CONFUSIONAL STATE [None]
  - HYPOTENSION [None]
  - PNEUMONIA [None]
  - ASTHENIA [None]
  - HYPERCALCAEMIA OF MALIGNANCY [None]
  - RENAL FAILURE ACUTE [None]
  - ALTERED STATE OF CONSCIOUSNESS [None]
  - DECREASED APPETITE [None]
  - SOMNOLENCE [None]
  - LEUKOCYTOSIS [None]
  - LETHARGY [None]
  - UNRESPONSIVE TO STIMULI [None]
  - AGITATION [None]
  - DISORIENTATION [None]
  - DYSPHAGIA [None]
  - VOMITING [None]
  - URINARY TRACT INFECTION [None]
